FAERS Safety Report 20208395 (Version 2)
Quarter: 2021Q4

REPORT INFORMATION
  Report Type: Spontaneous
  Country: FR (occurrence: FR)
  Receive Date: 20211220
  Receipt Date: 20211230
  Transmission Date: 20220303
  Serious: Yes (Congenital Anomaly, Other)
  Sender: FDA-Public Use
  Company Number: FR-ABBOTT-08P-056-0477018-00

PATIENT
  Age: 0 Day
  Sex: Male
  Weight: 3 kg

DRUGS (1)
  1. VALPROATE SODIUM [Suspect]
     Active Substance: VALPROATE SODIUM
     Indication: Maternal exposure timing unspecified
     Route: 064

REACTIONS (40)
  - Gastrooesophageal reflux disease [Recovered/Resolved with Sequelae]
  - Hypermobility syndrome [Recovered/Resolved with Sequelae]
  - Dysmorphism [Recovered/Resolved with Sequelae]
  - Exposure during pregnancy [None]
  - Congenital hand malformation [Unknown]
  - Congenital nipple anomaly [Unknown]
  - Talipes [Unknown]
  - Foot deformity [Unknown]
  - Psychomotor skills impaired [Unknown]
  - Scoliosis [Unknown]
  - Atrial septal defect [Unknown]
  - Joint laxity [Unknown]
  - Hypospadias [Unknown]
  - Dysarthria [Unknown]
  - Behaviour disorder [Unknown]
  - Speech disorder developmental [Unknown]
  - Speech disorder [Unknown]
  - Autism spectrum disorder [Unknown]
  - Stereotypy [Unknown]
  - Urethral fistula [Unknown]
  - Coordination abnormal [Unknown]
  - Gross motor delay [Unknown]
  - Fine motor skill dysfunction [Unknown]
  - Cognitive disorder [Unknown]
  - Gastrooesophageal reflux disease [Unknown]
  - Eating disorder [Unknown]
  - Sleep disorder [Unknown]
  - Fatigue [Unknown]
  - Anxiety [Unknown]
  - Toe walking [Unknown]
  - Gait disturbance [Unknown]
  - Upper respiratory tract infection [Unknown]
  - Ear disorder [Unknown]
  - Food refusal [Unknown]
  - Anger [Unknown]
  - Aggression [Unknown]
  - Agitation [Unknown]
  - Enuresis [Unknown]
  - Plagiocephaly [Unknown]
  - Echolalia [Unknown]

NARRATIVE: CASE EVENT DATE: 20050128
